FAERS Safety Report 15700231 (Version 2)
Quarter: 2018Q4

REPORT INFORMATION
  Report Type: Spontaneous
  Country: KW (occurrence: KW)
  Receive Date: 20181207
  Receipt Date: 20181217
  Transmission Date: 20190205
  Serious: Yes (Death, Hospitalization, Other)
  Sender: FDA-Public Use
  Company Number: KW-ASTRAZENECA-2018SF60403

PATIENT
  Age: 337 Day
  Sex: Male

DRUGS (1)
  1. SYNAGIS [Suspect]
     Active Substance: PALIVIZUMAB
     Indication: ANTIVIRAL PROPHYLAXIS
     Dosage: MONTHLY
     Route: 030
     Dates: start: 20181103

REACTIONS (2)
  - Death [Fatal]
  - Cardiac operation [Not Recovered/Not Resolved]

NARRATIVE: CASE EVENT DATE: 20181127
